FAERS Safety Report 7944962-4 (Version None)
Quarter: 2011Q4

REPORT INFORMATION
  Report Type: 
  Country: None (occurrence: None)
  Receive Date: 20111129
  Receipt Date: 20111123
  Transmission Date: 20120403
  Serious: Yes (Hospitalization, Other)
  Sender: FDA-Public Use
  Company Number: PHHY2011AU95320

PATIENT
  Sex: Female

DRUGS (22)
  1. ATENOLOL [Concomitant]
     Dosage: 1 DF, TID
  2. CALCIUM CARBONATE [Concomitant]
     Dosage: 2 DF, DAILY
     Route: 048
  3. FLUVAX [Concomitant]
     Dosage: UNK UKN, UNK
  4. PNEUMOVAX 23 [Concomitant]
     Dosage: UNK UKN, UNK
     Dates: start: 20110419
  5. ACETAMINOPHEN [Concomitant]
     Dosage: 2 DF, BID
  6. PROCHLORPERAZINE [Concomitant]
     Dosage: 12.5 MG, UNK
     Route: 042
  7. DOXEPIN HCL [Concomitant]
     Dosage: 1 DF, AT NIGHT
     Route: 048
  8. VALIUM [Concomitant]
     Dosage: 1 DF, IN MORNING AND AT NIGHT
  9. EFFEXOR XR [Concomitant]
     Dosage: 1 DF, DAILY
  10. CALCIUM CARBONATE [Concomitant]
     Dosage: 1 DF, (1500 MG (600 MG CA)/200IU
  11. MURELAX [Concomitant]
     Dosage: 1 DF, PRN AT NIGHT
     Route: 048
  12. BENZODIAZEPINES [Concomitant]
  13. MURELAX [Concomitant]
     Dosage: 0.5 DF, PRN AT NIGHT
  14. CELEBREX [Concomitant]
     Dosage: 1 DF, PRN
  15. HYDROXOCOBALAMIN [Concomitant]
     Dosage: 1 MG/ML, UNK
  16. PROCHLORPERAZINE [Concomitant]
     Dosage: 5 MG, TID PRN
  17. ZOLEDRONOC ACID [Suspect]
     Dosage: 5 MG, UNK
     Route: 042
     Dates: start: 20101109
  18. SIMVASTATIN [Concomitant]
     Dosage: UNK UKN, UNK
     Route: 048
  19. FOSAMAX [Concomitant]
  20. MACRODANTIN [Concomitant]
     Dosage: 100 MG, UNK
  21. LEVOTHYROXINE SODIUM [Concomitant]
     Dosage: 1 DF, AT NIGHT
     Route: 048
  22. DIAZEPAM [Concomitant]
     Dosage: 1 DF, DAILY
     Route: 048

REACTIONS (29)
  - LIMB DISCOMFORT [None]
  - HYPERHIDROSIS [None]
  - WEIGHT DECREASED [None]
  - WOUND [None]
  - FALL [None]
  - LACERATION [None]
  - MUSCLE SPASMS [None]
  - DECREASED APPETITE [None]
  - BLOOD PRESSURE INCREASED [None]
  - PAIN [None]
  - BURNING SENSATION [None]
  - PAIN IN EXTREMITY [None]
  - DIARRHOEA [None]
  - RECTAL HAEMORRHAGE [None]
  - HOT FLUSH [None]
  - HEART RATE IRREGULAR [None]
  - CONTUSION [None]
  - GAIT DISTURBANCE [None]
  - INSOMNIA [None]
  - DYSPNOEA [None]
  - PAIN IN JAW [None]
  - HYPOAESTHESIA ORAL [None]
  - HYPOAESTHESIA [None]
  - DIZZINESS [None]
  - PARAESTHESIA ORAL [None]
  - PARAESTHESIA [None]
  - ANXIETY [None]
  - HAEMORRHOIDS [None]
  - JOINT DISLOCATION [None]
